FAERS Safety Report 9986516 (Version 1)
Quarter: 2014Q1

REPORT INFORMATION
  Report Type: Report from Study
  Country: US (occurrence: US)
  Receive Date: 20140307
  Receipt Date: 20140307
  Transmission Date: 20141002
  Serious: No
  Sender: FDA-Public Use
  Company Number: US-ABBVIE-13P-163-1086265-00

PATIENT
  Age: 9 Year
  Sex: Male
  Weight: 50.85 kg

DRUGS (3)
  1. HUMIRA [Suspect]
     Indication: VASCULITIS
     Route: 058
     Dates: start: 2011, end: 201209
  2. HUMIRA [Suspect]
     Indication: EPISCLERITIS
  3. PREDNISONE [Concomitant]
     Indication: PRODUCT USED FOR UNKNOWN INDICATION

REACTIONS (1)
  - Episcleritis [Not Recovered/Not Resolved]
